FAERS Safety Report 4287985-1 (Version None)
Quarter: 2004Q1

REPORT INFORMATION
  Report Type: 
  Country: None (occurrence: None)
  Receive Date: 20040202
  Receipt Date: 20030529
  Transmission Date: 20041129
  Serious: Yes (Hospitalization, Other)
  Sender: FDA-Public Use
  Company Number: 136868USA

PATIENT
  Age: 49 Year
  Sex: Male

DRUGS (4)
  1. COPAXONE [Suspect]
     Indication: MULTIPLE SCLEROSIS
     Dosage: 20 MILLIGRAM QD SUBCUTANEOUS
     Route: 058
     Dates: start: 20020901
  2. PREDNISONE TAB [Concomitant]
  3. SOLU-MEDROL [Concomitant]
  4. PROVIGIL [Concomitant]

REACTIONS (1)
  - MYOCARDIAL INFARCTION [None]
